FAERS Safety Report 5743342-X (Version None)
Quarter: 2008Q2

REPORT INFORMATION
  Report Type: 
  Country: None (occurrence: None)
  Receive Date: 20080519
  Receipt Date: 20080513
  Transmission Date: 20081010
  Serious: Yes (Hospitalization)
  Sender: FDA-Public Use
  Company Number: US-PFIZER INC-2008040879

PATIENT
  Age: 52 Year
  Sex: Male
  Weight: 77.3 kg

DRUGS (11)
  1. HYDROXYZINE HYDROCHLORIDE [Suspect]
  2. TEMODAR [Suspect]
     Indication: GLIOBLASTOMA MULTIFORME
     Route: 048
  3. ZETIA [Suspect]
     Route: 065
  4. COREG [Suspect]
     Route: 065
  5. PREVACID [Suspect]
     Route: 065
  6. SYNTHROID [Suspect]
     Route: 065
  7. PERCOCET [Suspect]
  8. CLOTRIMAZOLE [Suspect]
     Route: 065
  9. ZOCOR [Suspect]
     Route: 065
  10. ZOFRAN [Suspect]
     Route: 065
  11. KEPPRA [Suspect]
     Route: 065

REACTIONS (4)
  - ABDOMINAL PAIN [None]
  - HYPERSENSITIVITY [None]
  - RASH ERYTHEMATOUS [None]
  - RASH PRURITIC [None]
